FAERS Safety Report 21160815 (Version 1)
Quarter: 2022Q3

REPORT INFORMATION
  Report Type: Spontaneous
  Country: US (occurrence: US)
  Receive Date: 20220802
  Receipt Date: 20220802
  Transmission Date: 20221027
  Serious: Yes (Other)
  Sender: FDA-Public Use
  Company Number: US-ELI_LILLY_AND_COMPANY-US202207009389

PATIENT

DRUGS (12)
  1. TALTZ [Suspect]
     Active Substance: IXEKIZUMAB
     Indication: Psoriasis
     Dosage: 80 MG, UNKNOWN
     Route: 058
  2. TALTZ [Suspect]
     Active Substance: IXEKIZUMAB
     Indication: Psoriasis
     Dosage: 80 MG, UNKNOWN
     Route: 058
  3. TALTZ [Suspect]
     Active Substance: IXEKIZUMAB
     Indication: Psoriatic arthropathy
  4. TALTZ [Suspect]
     Active Substance: IXEKIZUMAB
     Indication: Psoriatic arthropathy
  5. ZOFRAN [Concomitant]
     Active Substance: ONDANSETRON HYDROCHLORIDE
     Indication: Morning sickness
     Dosage: 4 MG, UNKNOWN
     Route: 048
     Dates: start: 20220414, end: 20220614
  6. ZOFRAN [Concomitant]
     Active Substance: ONDANSETRON HYDROCHLORIDE
     Indication: Morning sickness
     Dosage: 4 MG, UNKNOWN
     Route: 048
     Dates: start: 20220414, end: 20220614
  7. PRENATAL VITAMINS [ASCORBIC ACID;BETACAROTENE [Concomitant]
     Indication: Pregnancy
     Dosage: UNK
  8. PRENATAL VITAMINS [ASCORBIC ACID;BETACAROTENE [Concomitant]
     Indication: Pregnancy
     Dosage: UNK
  9. ASPIRIN [Concomitant]
     Active Substance: ASPIRIN
     Indication: Pre-eclampsia
     Dosage: 81 MG, UNKNOWN
     Route: 048
     Dates: start: 20220331
  10. ASPIRIN [Concomitant]
     Active Substance: ASPIRIN
     Indication: Pre-eclampsia
     Dosage: 81 MG, UNKNOWN
     Route: 048
     Dates: start: 20220331
  11. CLOBETASOL [Concomitant]
     Active Substance: CLOBETASOL
     Indication: Psoriasis
     Dosage: UNK
     Route: 061
     Dates: start: 20200630, end: 20220714
  12. CLOBETASOL [Concomitant]
     Active Substance: CLOBETASOL
     Indication: Psoriasis
     Dosage: UNK
     Route: 061
     Dates: start: 20200630, end: 20220714

REACTIONS (3)
  - Abnormal cord insertion [Not Recovered/Not Resolved]
  - Foetal growth abnormality [Recovered/Resolved]
  - Foetal exposure during pregnancy [Recovered/Resolved]

NARRATIVE: CASE EVENT DATE: 20220523
